FAERS Safety Report 9602051 (Version 1)
Quarter: 2013Q4

REPORT INFORMATION
  Report Type: Spontaneous
  Country: US (occurrence: None)
  Receive Date: 20131004
  Receipt Date: 20131004
  Transmission Date: 20140711
  Serious: Yes (Hospitalization)
  Sender: FDA-Public Use
  Company Number: None

PATIENT
  Age: 69 Year
  Sex: Male
  Weight: 62.7 kg

DRUGS (1)
  1. CLOPIDOGREL [Suspect]
     Dates: start: 20130831

REACTIONS (3)
  - Haemoptysis [None]
  - Melaena [None]
  - Gastric haemorrhage [None]
